FAERS Safety Report 17826606 (Version 2)
Quarter: 2020Q2

REPORT INFORMATION
  Report Type: Report from Study
  Country: US (occurrence: US)
  Receive Date: 20200526
  Receipt Date: 20200603
  Transmission Date: 20200714
  Serious: Yes (Hospitalization)
  Sender: FDA-Public Use
  Company Number: US-ACTELION-A-US2020-205366

PATIENT
  Age: 77 Year
  Sex: Female
  Weight: 97.51 kg

DRUGS (26)
  1. DONEPEZIL. [Concomitant]
     Active Substance: DONEPEZIL
  2. POTASSIUM CHLORIDE. [Concomitant]
     Active Substance: POTASSIUM CHLORIDE
  3. CLONIDINE. [Concomitant]
     Active Substance: CLONIDINE
  4. TRAMADOL. [Concomitant]
     Active Substance: TRAMADOL
  5. AMLODIPINE [Concomitant]
     Active Substance: AMLODIPINE BESYLATE
  6. SILDENAFIL CITRATE. [Suspect]
     Active Substance: SILDENAFIL CITRATE
     Indication: PRODUCT USED FOR UNKNOWN INDICATION
     Route: 065
  7. DULOXETINE. [Concomitant]
     Active Substance: DULOXETINE
  8. TRAZODONE [Concomitant]
     Active Substance: TRAZODONE HYDROCHLORIDE
  9. LOSARTAN. [Concomitant]
     Active Substance: LOSARTAN
  10. FENOFIBRATE. [Concomitant]
     Active Substance: FENOFIBRATE
  11. AMLODIPINE BESYLATE. [Concomitant]
     Active Substance: AMLODIPINE BESYLATE
  12. ALBUTEROL HFA [Concomitant]
     Active Substance: ALBUTEROL SULFATE
  13. PROLIA [Concomitant]
     Active Substance: DENOSUMAB
  14. ASPIRIN 81 [Concomitant]
     Active Substance: ASPIRIN
  15. AMITIZA [Concomitant]
     Active Substance: LUBIPROSTONE
  16. TIZANIDINE. [Concomitant]
     Active Substance: TIZANIDINE
  17. GABAPENTIN. [Concomitant]
     Active Substance: GABAPENTIN
  18. CALCIUM [Concomitant]
     Active Substance: CALCIUM
  19. MELATONIN [Concomitant]
     Active Substance: MELATONIN
  20. MEMANTINE. [Concomitant]
     Active Substance: MEMANTINE
  21. ALLOPURINOL. [Concomitant]
     Active Substance: ALLOPURINOL
  22. FUROSEMIDE. [Concomitant]
     Active Substance: FUROSEMIDE
  23. MAGNESIUM [Concomitant]
     Active Substance: MAGNESIUM
  24. OPSUMIT [Suspect]
     Active Substance: MACITENTAN
     Indication: PULMONARY ARTERIAL PRESSURE
     Dosage: 10 MG, QD
     Route: 048
     Dates: start: 20200428
  25. TRELEGY ELLIPTA [Concomitant]
     Active Substance: FLUTICASONE FUROATE\UMECLIDINIUM BROMIDE\VILANTEROL TRIFENATATE
  26. ALEVE [Concomitant]
     Active Substance: NAPROXEN SODIUM

REACTIONS (5)
  - Dyspnoea [Unknown]
  - Bronchitis [Unknown]
  - Wheezing [Unknown]
  - Pulmonary oedema [Unknown]
  - Pneumonia [Unknown]

NARRATIVE: CASE EVENT DATE: 20200504
